FAERS Safety Report 18147335 (Version 2)
Quarter: 2020Q4

REPORT INFORMATION
  Report Type: Spontaneous
  Country: US (occurrence: US)
  Receive Date: 20200814
  Receipt Date: 20201015
  Transmission Date: 20210113
  Serious: Yes (Hospitalization, Other)
  Sender: FDA-Public Use
  Company Number: US-QUAGEN-2020QUALIT00062

PATIENT
  Age: 5 Month
  Sex: Female

DRUGS (1)
  1. TRIAMCINOLONE ACETONIDE LOTION USP [Suspect]
     Active Substance: TRIAMCINOLONE ACETONIDE
     Indication: DERMATITIS DIAPER
     Route: 061

REACTIONS (5)
  - Intentional product misuse [Unknown]
  - Developmental delay [Unknown]
  - Skin atrophy [Recovered/Resolved]
  - Cushing^s syndrome [Recovered/Resolved]
  - Adrenal insufficiency [Recovered/Resolved]
